FAERS Safety Report 6048447-4 (Version None)
Quarter: 2009Q1

REPORT INFORMATION
  Report Type: 
  Country: None (occurrence: None)
  Receive Date: 20090123
  Receipt Date: 20090116
  Transmission Date: 20090719
  Serious: Yes (Hospitalization)
  Sender: FDA-Public Use
  Company Number: A0764652A

PATIENT
  Age: 52 Year
  Sex: Female
  Weight: 110 kg

DRUGS (3)
  1. AVANDIA [Suspect]
     Dosage: 8MG PER DAY
     Route: 048
     Dates: start: 20040101, end: 20060801
  2. METFORMIN [Concomitant]
     Dates: start: 20040101, end: 20080831
  3. INSULIN [Concomitant]
     Dates: start: 19900101

REACTIONS (4)
  - ADVERSE EVENT [None]
  - CARDIAC FAILURE CONGESTIVE [None]
  - DYSPNOEA [None]
  - FATIGUE [None]
